FAERS Safety Report 8760342 (Version 1)
Quarter: 2012Q4

REPORT INFORMATION
  Report Type: Spontaneous
  Country: US (occurrence: None)
  Receive Date: 20120829
  Receipt Date: 20120829
  Transmission Date: 20130627
  Serious: Yes (Other)
  Sender: FDA-Public Use
  Company Number: None

PATIENT
  Age: 56 Year
  Sex: Male
  Weight: 81.65 kg

DRUGS (3)
  1. BUPROPION [Suspect]
     Indication: DEPRESSION
     Route: 048
     Dates: start: 20110909, end: 20110927
  2. BUPROPION [Concomitant]
  3. WELLBUTRIN SR [Concomitant]

REACTIONS (6)
  - Anxiety [None]
  - Suicidal ideation [None]
  - Anger [None]
  - Emotional disorder [None]
  - Depression [None]
  - Product substitution issue [None]
